FAERS Safety Report 7029337-7 (Version None)
Quarter: 2010Q4

REPORT INFORMATION
  Report Type: 
  Country: None (occurrence: None)
  Receive Date: 20101005
  Receipt Date: 20100923
  Transmission Date: 20110411
  Serious: Yes (Hospitalization, Other)
  Sender: FDA-Public Use
  Company Number: PHHY2010NL63724

PATIENT
  Age: 73 Year
  Sex: Female

DRUGS (7)
  1. PAMIDRONATE DISODIUM [Suspect]
     Indication: HYPERCALCAEMIA
  2. VITAMIN D3 [Suspect]
     Indication: OSTEOARTHRITIS
     Dosage: 3.75 \IG (150 IU)
  3. DIETARY SUPPLEMENTS [Suspect]
     Indication: OSTEOARTHRITIS
  4. ATENOLOL [Concomitant]
  5. CHLORTHALIDONE [Concomitant]
  6. BISACODYL [Concomitant]
  7. OXAZEPAM [Concomitant]

REACTIONS (9)
  - ALTERED STATE OF CONSCIOUSNESS [None]
  - BLOOD PARATHYROID HORMONE DECREASED [None]
  - HEMIPLEGIA [None]
  - HYPERCALCAEMIA [None]
  - HYPERVITAMINOSIS [None]
  - LETHARGY [None]
  - MECHANICAL VENTILATION [None]
  - POSTICTAL STATE [None]
  - STATUS EPILEPTICUS [None]
